FAERS Safety Report 4491195-2 (Version None)
Quarter: 2004Q3

REPORT INFORMATION
  Report Type: 
  Country: None (occurrence: None)
  Receive Date: 20040927
  Receipt Date: 20040804
  Transmission Date: 20050211
  Serious: No
  Sender: FDA-Public Use
  Company Number: USA040874503

PATIENT
  Age: 6 Year
  Sex: Male
  Weight: 18 kg

DRUGS (2)
  1. STRATTERA [Suspect]
     Indication: ATTENTION DEFICIT/HYPERACTIVITY DISORDER
     Dosage: 25 MG/1 DAY
     Dates: start: 20040701
  2. CLONIDINE [Concomitant]

REACTIONS (3)
  - DRUG EFFECT DECREASED [None]
  - INCREASED APPETITE [None]
  - SOMNOLENCE [None]
